FAERS Safety Report 17973462 (Version 1)
Quarter: 2020Q3

REPORT INFORMATION
  Report Type: Spontaneous
  Country: FR (occurrence: FR)
  Receive Date: 20200702
  Receipt Date: 20200702
  Transmission Date: 20201103
  Serious: Yes (Hospitalization)
  Sender: FDA-Public Use
  Company Number: FR-ACCORD-188203

PATIENT
  Age: 64 Year
  Sex: Female
  Weight: 84 kg

DRUGS (1)
  1. FUROSEMIDE. [Suspect]
     Active Substance: FUROSEMIDE
     Indication: CARDIAC FAILURE
     Route: 042
     Dates: start: 20200605, end: 20200609

REACTIONS (2)
  - Metabolic alkalosis [Recovering/Resolving]
  - Hypoxic-ischaemic encephalopathy [Recovering/Resolving]

NARRATIVE: CASE EVENT DATE: 20200608
